FAERS Safety Report 5293997-1 (Version None)
Quarter: 2007Q2

REPORT INFORMATION
  Report Type: 
  Country: None (occurrence: None)
  Receive Date: 20070405
  Receipt Date: 20070329
  Transmission Date: 20071010
  Serious: Yes (Hospitalization)
  Sender: FDA-Public Use
  Company Number: 2007-01671

PATIENT
  Age: 71 Year
  Sex: Male

DRUGS (5)
  1. DEXAMETHASONE [Suspect]
     Indication: MULTIPLE MYELOMA
     Dosage: 40 MG QD, ON DAYS 1-4,9 2,17-20, UNK
     Dates: start: 20060101, end: 20060101
  2. THALIDOMIDE [Suspect]
     Indication: MULTIPLE MYELOMA
     Dosage: 100 MG, QHS, ORAL
     Route: 048
     Dates: start: 20060101, end: 20060101
  3. DARBEPOETIN ALFA (DARBEPOETIN ALFA) [Concomitant]
  4. ZOLEDRONIC ACID (ZOLEDRONIC ACID) [Concomitant]
  5. WARFARIN SODIUM [Concomitant]

REACTIONS (1)
  - TUMOUR LYSIS SYNDROME [None]
